FAERS Safety Report 8049652-8 (Version None)
Quarter: 2012Q1

REPORT INFORMATION
  Report Type: 
  Country: None (occurrence: None)
  Receive Date: 20120117
  Receipt Date: 20120112
  Transmission Date: 20120608
  Serious: Yes (Hospitalization)
  Sender: FDA-Public Use
  Company Number: US-GLAXOSMITHKLINE-A0920984A

PATIENT
  Age: 58 Year
  Sex: Male
  Weight: 97.7 kg

DRUGS (3)
  1. GLUCOPHAGE [Concomitant]
  2. CELEXA [Concomitant]
  3. AVANDIA [Suspect]
     Indication: DIABETES MELLITUS
     Route: 048
     Dates: start: 20000309, end: 20070101

REACTIONS (3)
  - MYOCARDIAL INFARCTION [None]
  - HEART INJURY [None]
  - CARDIAC FAILURE [None]
